FAERS Safety Report 8547998 (Version 5)
Quarter: 2013Q2

REPORT INFORMATION
  Report Type: Report from Study
  Country: CH (occurrence: CH)
  Receive Date: 20120504
  Receipt Date: 20130607
  Transmission Date: 20140414
  Serious: Yes (Hospitalization)
  Sender: FDA-Public Use
  Company Number: CH-ROCHE-1063514

PATIENT
  Age: 80 Year
  Sex: Female
  Weight: 65.5 kg

DRUGS (8)
  1. VEMURAFENIB [Suspect]
     Indication: METASTATIC MALIGNANT MELANOMA
     Dosage: DATE OF LAST DOSE PRIOR TO SAE: 04/APR/2012
     Route: 048
     Dates: start: 20111101, end: 20120404
  2. LEVOTHYROXINE SODIUM [Suspect]
     Indication: PRODUCT USED FOR UNKNOWN INDICATION
     Dosage: DRUG TRADE NAME: EUTHYROX
     Route: 065
  3. DOMPERIDONE [Suspect]
     Indication: PRODUCT USED FOR UNKNOWN INDICATION
     Dosage: DRUG TRADE NAME: MOTILIUM
     Route: 065
  4. PANTOPRAZOLE [Suspect]
     Indication: PRODUCT USED FOR UNKNOWN INDICATION
     Route: 065
  5. ASPIRIN [Suspect]
     Indication: PRODUCT USED FOR UNKNOWN INDICATION
     Dosage: DRUG TRADE NAME: ASPIRIN CARDIO
     Route: 065
  6. ELECTROLYTES NOS\POLYETHYLENE GLYCOL 3350 [Suspect]
     Indication: PRODUCT USED FOR UNKNOWN INDICATION
     Dosage: DRUG TRADE NAME: MOVICOL
     Route: 065
  7. BENORILATE [Suspect]
     Indication: PRODUCT USED FOR UNKNOWN INDICATION
     Dosage: DRUG TRADE NAME: SALIPRAN
     Route: 065
  8. SODIUM PICOSULFATE [Suspect]
     Indication: PRODUCT USED FOR UNKNOWN INDICATION
     Dosage: DRUG TRADE NAME: LAXOBERAL
     Route: 065

REACTIONS (1)
  - Pancreatitis [Recovered/Resolved]
